FAERS Safety Report 7763075-8 (Version None)
Quarter: 2011Q3

REPORT INFORMATION
  Report Type: 
  Country: None (occurrence: None)
  Receive Date: 20110920
  Receipt Date: 20110915
  Transmission Date: 20111222
  Serious: Yes (Life-Threatening, Hospitalization)
  Sender: FDA-Public Use
  Company Number: LB-PFIZER INC-2011210442

PATIENT
  Age: 74 Year
  Sex: Female

DRUGS (4)
  1. ZYVOX [Suspect]
     Indication: DEVICE RELATED INFECTION
     Dosage: 600 MG, 2X/DAY
     Route: 042
     Dates: start: 20110805, end: 20110830
  2. BISOPROLOL FUMARATE [Concomitant]
     Indication: HYPERTENSION
     Dosage: 5 MG, 1X/DAY
     Route: 048
  3. ATACAND HCT [Concomitant]
     Indication: HYPERTENSION
     Dosage: 16 MG/12.5 MG, 1X/DAY
     Route: 048
  4. LYRICA [Concomitant]
     Indication: NEUROPATHY PERIPHERAL
     Dosage: 75 MG, 2X/DAY

REACTIONS (4)
  - RENAL SALT-WASTING SYNDROME [None]
  - HYPONATRAEMIA [None]
  - VOMITING [None]
  - NAUSEA [None]
